FAERS Safety Report 7688405-7 (Version None)
Quarter: 2011Q3

REPORT INFORMATION
  Report Type: 
  Country: None (occurrence: None)
  Receive Date: 20110817
  Receipt Date: 20110804
  Transmission Date: 20111222
  Serious: Yes (Death, Other)
  Sender: FDA-Public Use
  Company Number: DE-ROCHE-779033

PATIENT
  Sex: Male
  Weight: 56 kg

DRUGS (3)
  1. PACLITAXEL [Concomitant]
     Dates: start: 20101201
  2. BEVACIZUMAB [Suspect]
     Route: 042
     Dates: start: 20101223, end: 20110417
  3. CARBOPLATIN [Concomitant]
     Dates: start: 20101201

REACTIONS (2)
  - CARDIAC FAILURE [None]
  - PERICARDIAL EFFUSION [None]
